FAERS Safety Report 6887578-3 (Version None)
Quarter: 2010Q3

REPORT INFORMATION
  Report Type: 
  Country: None (occurrence: None)
  Receive Date: 20100727
  Receipt Date: 20100722
  Transmission Date: 20110219
  Serious: Yes (Hospitalization)
  Sender: FDA-Public Use
  Company Number: USA/AUS/10/0014418

PATIENT
  Sex: Male

DRUGS (1)
  1. IBUPROFEN [Suspect]
     Indication: BACK PAIN
     Dosage: PER ORAL
     Route: 048

REACTIONS (6)
  - DEHYDRATION [None]
  - DUODENAL STENOSIS [None]
  - DUODENAL ULCER [None]
  - IRON DEFICIENCY ANAEMIA [None]
  - MALNUTRITION [None]
  - WEIGHT DECREASED [None]
